FAERS Safety Report 4300661-1 (Version None)
Quarter: 2004Q1

REPORT INFORMATION
  Report Type: 
  Country: None (occurrence: None)
  Receive Date: 20040219
  Receipt Date: 20040219
  Transmission Date: 20041129
  Serious: No
  Sender: FDA-Public Use
  Company Number: None

PATIENT
  Age: 38 Year
  Sex: Female
  Weight: 58.9676 kg

DRUGS (5)
  1. REBIF [Suspect]
     Indication: MULTIPLE SCLEROSIS
     Dosage: REBIF 44MCG TIW SUB CUT.
     Route: 058
     Dates: start: 20020601, end: 20021207
  2. FLUOXETINE [Concomitant]
  3. CEPHALEXIN [Concomitant]
  4. BACLOFEN [Concomitant]
  5. PROVIGIL [Concomitant]

REACTIONS (2)
  - EPISTAXIS [None]
  - LEUKOCYTOCLASTIC VASCULITIS [None]
